FAERS Safety Report 19163754 (Version 1)
Quarter: 2021Q2

REPORT INFORMATION
  Report Type: Spontaneous
  Country: US (occurrence: US)
  Receive Date: 20210225
  Receipt Date: 20210225
  Transmission Date: 20210717
  Serious: Yes (Life-Threatening, Hospitalization)
  Sender: FDA-Public Use
  Company Number: None

PATIENT
  Age: 50 Year
  Sex: Female
  Weight: 59 kg

DRUGS (20)
  1. MAGNESIUM CHLORIDE. [Suspect]
     Active Substance: MAGNESIUM CHLORIDE
     Indication: PRODUCT USED FOR UNKNOWN INDICATION
     Route: 042
     Dates: start: 20210222
  2. HUM SKINNY BIRD [Concomitant]
  3. 2 DRINKS OF ALCOHOL DAILY [Concomitant]
  4. PHENTERMINE. [Concomitant]
     Active Substance: PHENTERMINE
  5. PREGNENOLONE [Concomitant]
     Active Substance: PREGNENOLONE
  6. BIOSIL [Concomitant]
  7. ENERGY DRINKS [Concomitant]
  8. DHEA COMPLETE [Concomitant]
  9. NUCIFIX BIO [Concomitant]
  10. ASORBIC ACID INJECTION PRESERVED 500MG/ML [Suspect]
     Active Substance: ASCORBIC ACID
     Indication: PRODUCT USED FOR UNKNOWN INDICATION
     Route: 042
     Dates: start: 20210222
  11. CHARCOAL ACTIVATOR [Concomitant]
  12. IV LIPO C [Concomitant]
  13. VITAMIN B COMPLEX [Concomitant]
     Active Substance: CYANOCOBALAMIN\DEXPANTHENOL\NIACINAMIDE\PYRIDOXINE HYDROCHLORIDE\RIBOFLAVIN 5^-PHOSPHATE SODIUM\THIAMINE HYDROCHLORIDE\VITAMIN B COMPLEX
  14. CARISOPRODOL. [Concomitant]
     Active Substance: CARISOPRODOL
  15. ZINC. [Concomitant]
     Active Substance: ZINC
  16. IV ULTRABURN [Concomitant]
  17. HUM DAILY CLEANSE [Concomitant]
  18. CHLOROXYGEN [Concomitant]
  19. MOON JUCE CUPERYOU [Concomitant]
  20. TESTOSTERONE MICRONIZED [Concomitant]

REACTIONS (10)
  - Dizziness [None]
  - Blood lactate dehydrogenase increased [None]
  - Blood urea increased [None]
  - Tachycardia [None]
  - Septic shock [None]
  - Multiple organ dysfunction syndrome [None]
  - Alanine aminotransferase increased [None]
  - Hypotension [None]
  - Blood creatinine increased [None]
  - Aspartate aminotransferase increased [None]

NARRATIVE: CASE EVENT DATE: 20210222
